FAERS Safety Report 22152056 (Version 1)
Quarter: 2023Q1

REPORT INFORMATION
  Report Type: Spontaneous
  Country: US (occurrence: US)
  Receive Date: 20230329
  Receipt Date: 20230329
  Transmission Date: 20230418
  Serious: No
  Sender: FDA-Public Use
  Company Number: US-SA-SAC20230324001504

PATIENT
  Age: 83 Year
  Sex: Male

DRUGS (7)
  1. DUPIXENT [Suspect]
     Active Substance: DUPILUMAB
     Indication: Dermatitis atopic
     Dosage: 300 MG, QOW
     Route: 065
  2. CARBIDOPA\LEVODOPA [Concomitant]
     Active Substance: CARBIDOPA\LEVODOPA
  3. DOXAZOSIN [Concomitant]
     Active Substance: DOXAZOSIN MESYLATE
  4. FLONASE ALLERGY RELIEF [Concomitant]
     Active Substance: FLUTICASONE PROPIONATE
  5. FUROSEMIDE [Concomitant]
     Active Substance: FUROSEMIDE
  6. SPIRONOLACTONE [Concomitant]
     Active Substance: SPIRONOLACTONE
  7. ZETIA [Concomitant]
     Active Substance: EZETIMIBE

REACTIONS (6)
  - Hypertension [Unknown]
  - Anxiety [Unknown]
  - Depressed mood [Unknown]
  - Skin swelling [Unknown]
  - Blood pressure decreased [Unknown]
  - Pruritus [Unknown]

NARRATIVE: CASE EVENT DATE: 20230201
